FAERS Safety Report 8881469 (Version 2)
Quarter: 2012Q4

REPORT INFORMATION
  Report Type: 
  Country: JP (occurrence: JP)
  Receive Date: 20121102
  Receipt Date: 20121126
  Transmission Date: 20130627
  Serious: Yes (Hospitalization)
  Sender: FDA-Public Use
  Company Number: JP-GE HEALTHCARE MEDICAL DIAGNOSTICS-OMPQ-NO-1210S-1152

PATIENT
  Age: 65 Year
  Sex: Female

DRUGS (10)
  1. OMNIPAQUE [Suspect]
     Indication: METASTASIS
     Route: 042
     Dates: start: 20121004, end: 20121004
  2. OMNIPAQUE [Suspect]
     Indication: DIAGNOSTIC PROCEDURE
  3. OMNIPAQUE [Suspect]
     Indication: BREAST CANCER
  4. TS-1 [Concomitant]
  5. CELECOX [Concomitant]
  6. MUCOSTA [Concomitant]
  7. EPEL [Concomitant]
  8. MECOBALAMIN [Concomitant]
  9. NORVASC [Concomitant]
  10. LYRICA [Concomitant]

REACTIONS (2)
  - Oropharyngeal discomfort [Recovered/Resolved]
  - Cough [Recovered/Resolved]
